FAERS Safety Report 14102473 (Version 1)
Quarter: 2017Q4

REPORT INFORMATION
  Report Type: Spontaneous
  Country: US (occurrence: US)
  Receive Date: 20171018
  Receipt Date: 20171018
  Transmission Date: 20180321
  Serious: No
  Sender: FDA-Public Use
  Company Number: US-PERRIGO-17US001105

PATIENT
  Age: 50 Year
  Sex: Male
  Weight: 81.63 kg

DRUGS (1)
  1. NICOTINE POLACRILEX [Suspect]
     Active Substance: NICOTINE
     Indication: SMOKING CESSATION THERAPY
     Dosage: 4 MG, EVERY 2 TO 4 HOURS, 6 TO 8 TIMES QD
     Route: 002
     Dates: start: 20170121, end: 20170126

REACTIONS (6)
  - Joint stiffness [Not Recovered/Not Resolved]
  - Joint swelling [Not Recovered/Not Resolved]
  - Arthralgia [Not Recovered/Not Resolved]
  - Joint warmth [Not Recovered/Not Resolved]
  - Tendon pain [Not Recovered/Not Resolved]
  - Tendon discomfort [Not Recovered/Not Resolved]

NARRATIVE: CASE EVENT DATE: 20170122
